FAERS Safety Report 13861480 (Version 4)
Quarter: 2017Q3

REPORT INFORMATION
  Report Type: Report from Study
  Country: US (occurrence: US)
  Receive Date: 20170811
  Receipt Date: 20170830
  Transmission Date: 20171127
  Serious: Yes (Death, Other)
  Sender: FDA-Public Use
  Company Number: US-GILEAD-2017-0286020

PATIENT
  Age: 80 Year
  Sex: Male
  Weight: 80.73 kg

DRUGS (16)
  1. AMBRISENTAN [Suspect]
     Active Substance: AMBRISENTAN
     Indication: PRODUCT USED FOR UNKNOWN INDICATION
     Dosage: 10 MG, UNK
     Route: 048
     Dates: start: 20141001, end: 20170726
  2. STIOLTO RESPIMAT [Concomitant]
     Active Substance: OLODATEROL HYDROCHLORIDE\TIOTROPIUM BROMIDE MONOHYDRATE
  3. MULTI VITAMIN                      /08408501/ [Concomitant]
  4. OXYGEN. [Concomitant]
     Active Substance: OXYGEN
  5. ASPIRIN 81 [Concomitant]
     Active Substance: ASPIRIN
  6. ATENOLOL. [Concomitant]
     Active Substance: ATENOLOL
  7. LASIX [Concomitant]
     Active Substance: FUROSEMIDE
  8. AMBRISENTAN [Suspect]
     Active Substance: AMBRISENTAN
     Dosage: 10 MG, QOD
     Route: 048
     Dates: start: 20170726, end: 201708
  9. SIMVASTATIN. [Concomitant]
     Active Substance: SIMVASTATIN
  10. ESCITALOPRAM [Concomitant]
     Active Substance: ESCITALOPRAM OXALATE
  11. POTASSIUM [Concomitant]
     Active Substance: POTASSIUM
  12. TRESIBA [Concomitant]
     Active Substance: INSULIN DEGLUDEC
  13. VENTOLIN [Concomitant]
     Active Substance: ALBUTEROL SULFATE
  14. PANTOPRAZOLE [Concomitant]
     Active Substance: PANTOPRAZOLE
  15. SILDENAFIL. [Concomitant]
     Active Substance: SILDENAFIL
  16. SYNTHROID [Concomitant]
     Active Substance: LEVOTHYROXINE SODIUM

REACTIONS (4)
  - Off label use [Recovered/Resolved]
  - Hypoxia [Not Recovered/Not Resolved]
  - Drug ineffective [Unknown]
  - Death [Fatal]

NARRATIVE: CASE EVENT DATE: 20170726
